FAERS Safety Report 5877891-0 (Version None)
Quarter: 2008Q3

REPORT INFORMATION
  Report Type: 
  Country: None (occurrence: None)
  Receive Date: 20080911
  Receipt Date: 20080904
  Transmission Date: 20090109
  Serious: Yes (Hospitalization, Disabling, Congenital Anomaly, Other)
  Sender: FDA-Public Use
  Company Number: A0644519A

PATIENT
  Sex: Male
  Weight: 0.8 kg

DRUGS (6)
  1. PAXIL [Suspect]
     Indication: DEPRESSION
     Dosage: 30MG PER DAY
     Dates: start: 20010801, end: 20020301
  2. STEROIDS [Suspect]
  3. VITAMIN TAB [Concomitant]
     Indication: PREGNANCY
  4. ZOLOFT [Concomitant]
     Indication: ANXIETY
     Dosage: 10MG PER DAY
     Dates: start: 20010801, end: 20011001
  5. TOPROL-XL [Concomitant]
     Dates: start: 20010801, end: 20020401
  6. IRON PILLS [Concomitant]
     Indication: BLOOD IRON DECREASED
     Dates: start: 20010801

REACTIONS (35)
  - ANHEDONIA [None]
  - ASTHMA [None]
  - BREECH PRESENTATION [None]
  - BRONCHOPULMONARY DISEASE [None]
  - BRONCHOPULMONARY DYSPLASIA [None]
  - CEREBRAL HAEMORRHAGE [None]
  - COGNITIVE DISORDER [None]
  - CONVULSION [None]
  - DEAFNESS NEUROSENSORY [None]
  - DEVELOPMENTAL DELAY [None]
  - DRUG EXPOSURE DURING PREGNANCY [None]
  - GASTROOESOPHAGEAL REFLUX DISEASE [None]
  - HEART DISEASE CONGENITAL [None]
  - HERNIA [None]
  - IMMUNE SYSTEM DISORDER [None]
  - LARYNGEAL WEB [None]
  - LUNG DISORDER [None]
  - MENTAL DISORDER [None]
  - MIGRAINE [None]
  - NASOPHARYNGITIS [None]
  - NEONATAL DISORDER [None]
  - OTITIS MEDIA [None]
  - PAIN [None]
  - PATENT DUCTUS ARTERIOSUS [None]
  - PERSISTENT FOETAL CIRCULATION [None]
  - PNEUMONIA [None]
  - PREMATURE BABY [None]
  - PREMATURE SEPARATION OF PLACENTA [None]
  - RESPIRATORY DISTRESS [None]
  - RESPIRATORY SYNCYTIAL VIRUS BRONCHIOLITIS [None]
  - RETINOPATHY OF PREMATURITY [None]
  - SPEECH DISORDER DEVELOPMENTAL [None]
  - STATUS ASTHMATICUS [None]
  - VISUAL IMPAIRMENT [None]
  - VOCAL CORD DISORDER [None]
